FAERS Safety Report 5678879-5 (Version None)
Quarter: 2008Q1

REPORT INFORMATION
  Report Type: 
  Country: None (occurrence: None)
  Receive Date: 20080321
  Receipt Date: 20080310
  Transmission Date: 20080703
  Serious: Yes (Other)
  Sender: FDA-Public Use
  Company Number: 2008US000722

PATIENT
  Age: 53 Year
  Sex: Male

DRUGS (6)
  1. PROGRAF [Suspect]
     Indication: RENAL TRANSPLANT
     Dates: start: 20040101
  2. PROCRIT [Suspect]
     Indication: NEPHROGENIC ANAEMIA
     Dosage: 40000 IU, TOTAL DOSE, SUBCUTANEOUS; 80000 IU, WEEKLY, SUBCUTANEOUS
     Route: 058
     Dates: start: 20040920, end: 20040920
  3. PROCRIT [Suspect]
     Indication: NEPHROGENIC ANAEMIA
     Dosage: 40000 IU, TOTAL DOSE, SUBCUTANEOUS; 80000 IU, WEEKLY, SUBCUTANEOUS
     Route: 058
     Dates: start: 20040901
  4. SORIATANE [Suspect]
     Indication: DRUG USE FOR UNKNOWN INDICATION
     Dates: start: 20050101
  5. SULFAMETHOXAZOLE [Suspect]
     Indication: DRUG USE FOR UNKNOWN INDICATION
     Dates: start: 20071212, end: 20080112
  6. IMMUNOSUPPRESSIVE AGENTS [Concomitant]

REACTIONS (7)
  - BONE MARROW FAILURE [None]
  - DRUG INEFFECTIVE [None]
  - DRUG SPECIFIC ANTIBODY ABSENT [None]
  - HAEMOGLOBIN DECREASED [None]
  - NO THERAPEUTIC RESPONSE [None]
  - PLATELET COUNT DECREASED [None]
  - THERAPEUTIC RESPONSE DECREASED [None]
